FAERS Safety Report 24292710 (Version 1)
Quarter: 2024Q3

REPORT INFORMATION
  Report Type: Spontaneous
  Country: US (occurrence: None)
  Receive Date: 20240906
  Receipt Date: 20240906
  Transmission Date: 20241017
  Serious: No
  Sender: DOMPE FARMACEUTICI
  Company Number: US-FARMAPROD-202308-202310-2988

PATIENT
  Sex: Male
  Weight: 79.38 kg

DRUGS (15)
  1. OXERVATE [Suspect]
     Active Substance: CENEGERMIN-BKBJ
     Indication: Neurotrophic keratopathy
     Route: 047
     Dates: start: 20230911
  2. OXERVATE [Suspect]
     Active Substance: CENEGERMIN-BKBJ
     Indication: Dry eye
  3. ALLOPURINOL [Concomitant]
     Active Substance: ALLOPURINOL
  4. DOXYCYCLINE HYCLATE [Concomitant]
     Active Substance: DOXYCYCLINE HYCLATE
  5. METOPROLOL SUCCINATE [Concomitant]
     Active Substance: METOPROLOL SUCCINATE
     Dosage: 24 HOURS.
  6. CLOPIDOGREL [Concomitant]
     Active Substance: CLOPIDOGREL BISULFATE
  7. OLMESARTAN MEDOXOMIL [Concomitant]
     Active Substance: OLMESARTAN MEDOXOMIL
  8. ISOSORBIDE MONONITRATE [Concomitant]
     Active Substance: ISOSORBIDE MONONITRATE
     Dosage: EXTENDED RELEASE.
  9. ASPIRIN [Concomitant]
     Active Substance: ASPIRIN
  10. INDAPAMIDE [Concomitant]
     Active Substance: INDAPAMIDE
  11. NITROGLYCERIN [Concomitant]
     Active Substance: NITROGLYCERIN
  12. XIIDRA [Concomitant]
     Active Substance: LIFITEGRAST
  13. SYSTANE (HYPROMELLOSE 2910 (4000 MPA.S)) [Concomitant]
     Active Substance: HYPROMELLOSE 2910 (4000 MPA.S)
     Dosage: 0.3 %-0.4%
  14. SYSTANE (HYPROMELLOSE 2910 (4000 MPA.S)) [Concomitant]
     Active Substance: HYPROMELLOSE 2910 (4000 MPA.S)
     Dosage: 0.3 %-0.4%
  15. SYSTANE GEL [Concomitant]
     Dosage: 0.3 %-0.4%

REACTIONS (3)
  - Inappropriate schedule of product administration [Unknown]
  - Wrong technique in product usage process [Unknown]
  - Eye pain [Not Recovered/Not Resolved]
